FAERS Safety Report 15631870 (Version 1)
Quarter: 2018Q4

REPORT INFORMATION
  Report Type: Spontaneous
  Country: US (occurrence: US)
  Receive Date: 20181119
  Receipt Date: 20181119
  Transmission Date: 20190205
  Serious: Yes (Other)
  Sender: FDA-Public Use
  Company Number: US-BAYER-2018-210471

PATIENT
  Sex: Female

DRUGS (3)
  1. ALKA-SELTZER ORIGINAL [Suspect]
     Active Substance: ANHYDROUS CITRIC ACID\ASPIRIN\SODIUM BICARBONATE
     Indication: URINARY INCONTINENCE
     Route: 065
  2. BAYER ASPIRIN [Suspect]
     Active Substance: ASPIRIN
  3. PRILOSEC [Suspect]
     Active Substance: OMEPRAZOLE MAGNESIUM

REACTIONS (2)
  - Product use in unapproved indication [Unknown]
  - Ulcer haemorrhage [None]
